FAERS Safety Report 6500509-0 (Version None)
Quarter: 2009Q4

REPORT INFORMATION
  Report Type: 
  Country: None (occurrence: None)
  Receive Date: 20091216
  Receipt Date: 20091209
  Transmission Date: 20100525
  Serious: Yes (Hospitalization)
  Sender: FDA-Public Use
  Company Number: AU-BRISTOL-MYERS SQUIBB COMPANY-14889554

PATIENT
  Age: 71 Year
  Sex: Female
  Weight: 71 kg

DRUGS (7)
  1. CISPLATIN [Suspect]
     Indication: NON-SMALL CELL LUNG CANCER
     Dosage: 14OCT09-06NOV09:75MG/M2 (24D) RECENT DOSE:06NOV09 DOSE REDUCED TO 75% DAY 1 EVERY 21 DAYS
     Route: 042
     Dates: start: 20091014
  2. ALIMTA [Suspect]
     Indication: NON-SMALL CELL LUNG CANCER
     Dosage: 14OCT09-06NOV09:500MG/M2:(24D) RECENT DOSE:06NOV09 DOSE REDUCED TO 75% DAY 1 EVERY 21 DAYS
     Route: 042
     Dates: start: 20091014
  3. FOLIC ACID [Concomitant]
     Indication: PROPHYLAXIS
     Dates: start: 20091009
  4. VITAMIN B-12 [Concomitant]
     Indication: PROPHYLAXIS
     Dates: start: 20091009
  5. DEXAMETHASONE [Concomitant]
     Indication: PROPHYLAXIS
     Dates: start: 20091009
  6. THIAMINE [Concomitant]
  7. ENOXAPARIN SODIUM [Concomitant]

REACTIONS (10)
  - BLOOD ALBUMIN DECREASED [None]
  - BLOOD CREATININE DECREASED [None]
  - BLOOD LACTATE DEHYDROGENASE INCREASED [None]
  - BLOOD UREA DECREASED [None]
  - HAEMOGLOBIN DECREASED [None]
  - PLEURAL EFFUSION [None]
  - PROTEIN TOTAL DECREASED [None]
  - RASH [None]
  - RASH MACULAR [None]
  - WHITE BLOOD CELL COUNT DECREASED [None]
